FAERS Safety Report 7285125-8 (Version None)
Quarter: 2011Q1

REPORT INFORMATION
  Report Type: 
  Country: None (occurrence: None)
  Receive Date: 20110210
  Receipt Date: 20110131
  Transmission Date: 20110831
  Serious: Yes (Hospitalization, Other)
  Sender: FDA-Public Use
  Company Number: PHHY2010US76915

PATIENT
  Sex: Female

DRUGS (8)
  1. SYNTHROID [Concomitant]
  2. EXTAVIA [Suspect]
     Indication: MULTIPLE SCLEROSIS
     Dosage: 0.25 MG, QOD
     Route: 058
     Dates: start: 20100713
  3. ZOCOR [Concomitant]
  4. PRILOSEC [Concomitant]
  5. ATENOLOL [Concomitant]
  6. VITAMIN D [Concomitant]
  7. ASPIRIN [Concomitant]
  8. PREMARIN [Concomitant]

REACTIONS (4)
  - BLOOD SMEAR TEST ABNORMAL [None]
  - THYROID FUNCTION TEST ABNORMAL [None]
  - PNEUMONIA [None]
  - DRUG INEFFECTIVE [None]
